FAERS Safety Report 5053762-7 (Version None)
Quarter: 2006Q3

REPORT INFORMATION
  Report Type: 
  Country: None (occurrence: None)
  Receive Date: 20060718
  Receipt Date: 20060714
  Transmission Date: 20061208
  Serious: Yes (Death, Hospitalization)
  Sender: FDA-Public Use
  Company Number: 2006UW14493

PATIENT
  Sex: Male

DRUGS (5)
  1. NEXIUM [Suspect]
     Route: 048
  2. CARAFATE [Concomitant]
  3. REGLAN [Concomitant]
  4. LIDOCAINE HCL VISCOUS [Concomitant]
     Route: 002
  5. MAALOX FAST BLOCKER [Concomitant]

REACTIONS (1)
  - CLOSTRIDIAL INFECTION [None]
